FAERS Safety Report 6719546-6 (Version None)
Quarter: 2010Q2

REPORT INFORMATION
  Report Type: 
  Country: None (occurrence: None)
  Receive Date: 20100510
  Receipt Date: 20100510
  Transmission Date: 20101027
  Serious: Yes (Other)
  Sender: FDA-Public Use
  Company Number: None

PATIENT
  Age: 53 Year
  Sex: Female
  Weight: 99.7913 kg

DRUGS (3)
  1. EVAMIST [Suspect]
     Indication: MENOPAUSE
     Dosage: 2 SPRAYS DAILY TRANSDERMAL
     Route: 062
     Dates: start: 20080610, end: 20100501
  2. ESTRACE [Concomitant]
  3. NEXIUM [Concomitant]

REACTIONS (7)
  - ALLERGY TO CHEMICALS [None]
  - BLISTER [None]
  - DERMATITIS [None]
  - FOOD ALLERGY [None]
  - NO THERAPEUTIC RESPONSE [None]
  - PHOTOSENSITIVITY REACTION [None]
  - RASH PUSTULAR [None]
